FAERS Safety Report 23075080 (Version 2)
Quarter: 2023Q4

REPORT INFORMATION
  Report Type: Spontaneous
  Country: CN (occurrence: None)
  Receive Date: 20231017
  Receipt Date: 20231113
  Transmission Date: 20240110
  Serious: Yes (Other)
  Sender: FDA-Public Use
  Company Number: 2023A234439

PATIENT
  Sex: Male

DRUGS (1)
  1. SYMBICORT [Suspect]
     Active Substance: BUDESONIDE\FORMOTEROL FUMARATE DIHYDRATE
     Indication: Asthma
     Dosage: 160?G/4.5?G/INHALATION,60 INHALATIONS/VIA, UNKNOWN UNKNOWN
     Route: 055

REACTIONS (2)
  - Malaise [Unknown]
  - Device malfunction [Unknown]
